FAERS Safety Report 6455876-3 (Version None)
Quarter: 2009Q4

REPORT INFORMATION
  Report Type: 
  Country: None (occurrence: None)
  Receive Date: 20091119
  Receipt Date: 20091104
  Transmission Date: 20100525
  Serious: Yes (Death, Hospitalization, Other)
  Sender: FDA-Public Use
  Company Number: 2009BI036463

PATIENT
  Age: 58 Year
  Sex: Male

DRUGS (8)
  1. ZEVALIN [Suspect]
     Indication: STEM CELL TRANSPLANT
     Dosage: 0.4 MCI/KG; 1X; IV
     Route: 042
  2. RITUXIMAB [Concomitant]
  3. FLUDARA [Concomitant]
  4. BUSULFAN [Concomitant]
  5. METHOTREXATE [Concomitant]
  6. CYCLOSPORINE [Concomitant]
  7. CELLCEPT [Concomitant]
  8. CHEMOTHERAPY [Concomitant]

REACTIONS (17)
  - ACUTE RESPIRATORY DISTRESS SYNDROME [None]
  - ALANINE AMINOTRANSFERASE DECREASED [None]
  - BLOOD ALKALINE PHOSPHATASE INCREASED [None]
  - BLOOD POTASSIUM DECREASED [None]
  - BLOOD PRESSURE DIASTOLIC DECREASED [None]
  - BLOOD SODIUM DECREASED [None]
  - BRONCHOALVEOLAR LAVAGE ABNORMAL [None]
  - CIRCULATORY COLLAPSE [None]
  - ERYTHEMA [None]
  - GRAFT VERSUS HOST DISEASE [None]
  - HAEMOGLOBIN DECREASED [None]
  - INTERSTITIAL LUNG DISEASE [None]
  - METABOLIC ACIDOSIS [None]
  - MULTI-ORGAN FAILURE [None]
  - PCO2 DECREASED [None]
  - PLATELET COUNT DECREASED [None]
  - RENAL FAILURE [None]
